FAERS Safety Report 6636388-0 (Version None)
Quarter: 2010Q1

REPORT INFORMATION
  Report Type: 
  Country: None (occurrence: None)
  Receive Date: 20100226
  Receipt Date: 20091117
  Transmission Date: 20100710
  Serious: Yes (Hospitalization, Other)
  Sender: FDA-Public Use
  Company Number: WAES 0911USA02970

PATIENT
  Age: 75 Year
  Sex: Female

DRUGS (7)
  1. PRINIVIL [Suspect]
     Indication: DIURETIC THERAPY
     Dosage: PO
     Route: 048
  2. LASIX [Suspect]
     Indication: SWELLING
     Dosage: 40 MG/DAILY/PO
     Route: 048
  3. LIPITOR [Suspect]
  4. PREMARIN [Suspect]
  5. COUMADIN [Suspect]
  6. CARDILOL (CARVEDILOL) UNK [Suspect]
  7. LOVENOX [Suspect]

REACTIONS (4)
  - ATRIAL FIBRILLATION [None]
  - CARDIAC FAILURE CONGESTIVE [None]
  - CONTUSION [None]
  - HAEMATOMA [None]
